FAERS Safety Report 7261590-7 (Version None)
Quarter: 2011Q1

REPORT INFORMATION
  Report Type: 
  Country: None (occurrence: None)
  Receive Date: 20110130
  Receipt Date: 20101004
  Transmission Date: 20110831
  Serious: No
  Sender: FDA-Public Use
  Company Number: US-ABBOTT-10P-163-0675352-00

PATIENT
  Age: 52 Year
  Sex: Female

DRUGS (7)
  1. HUMIRA [Suspect]
     Dosage: DAY 29
     Route: 058
  2. HUMIRA [Suspect]
     Indication: CROHN'S DISEASE
     Dosage: DAY 1
     Route: 058
     Dates: start: 20100101
  3. HUMIRA [Suspect]
     Route: 058
  4. TRAMADOL HCL [Concomitant]
     Indication: PAIN
     Route: 048
  5. HUMIRA [Suspect]
     Dosage: DAY 15
     Route: 058
  6. IMURAN [Concomitant]
     Indication: PRODUCT USED FOR UNKNOWN INDICATION
     Route: 048
  7. PREDNISONE [Concomitant]
     Indication: PRODUCT USED FOR UNKNOWN INDICATION
     Route: 048
     Dates: start: 20100822

REACTIONS (5)
  - INCREASED TENDENCY TO BRUISE [None]
  - WOUND HAEMORRHAGE [None]
  - OROPHARYNGEAL PAIN [None]
  - INJECTION SITE HAEMATOMA [None]
  - SINUS CONGESTION [None]
